FAERS Safety Report 4817947-4 (Version None)
Quarter: 2005Q4

REPORT INFORMATION
  Report Type: 
  Country: None (occurrence: None)
  Receive Date: 20051102
  Receipt Date: 20051026
  Transmission Date: 20060501
  Serious: Yes (Hospitalization)
  Sender: FDA-Public Use
  Company Number: US-JNJFOC-20051005877

PATIENT
  Sex: Male

DRUGS (2)
  1. FENTANYL [Suspect]
     Route: 062
  2. NAPROXEN [Concomitant]
     Indication: PAIN
     Route: 048

REACTIONS (1)
  - PAIN [None]
